FAERS Safety Report 21755370 (Version 1)
Quarter: 2022Q4

REPORT INFORMATION
  Report Type: Spontaneous
  Country: JP (occurrence: JP)
  Receive Date: 20221220
  Receipt Date: 20221220
  Transmission Date: 20230113
  Serious: Yes (Other)
  Sender: FDA-Public Use
  Company Number: JP-PFIZER INC-202201381249

PATIENT

DRUGS (2)
  1. ZYVOX [Interacting]
     Active Substance: LINEZOLID
     Dosage: UNK
  2. LANSOPRAZOLE [Interacting]
     Active Substance: LANSOPRAZOLE
     Dosage: UNK

REACTIONS (2)
  - Drug interaction [Unknown]
  - Thrombocytopenia [Unknown]
